FAERS Safety Report 8182525-9 (Version None)
Quarter: 2012Q1

REPORT INFORMATION
  Report Type: 
  Country: None (occurrence: None)
  Receive Date: 20120305
  Receipt Date: 20120228
  Transmission Date: 20120608
  Serious: No
  Sender: FDA-Public Use
  Company Number: US-BIOGENIDEC-2012BI006362

PATIENT
  Sex: Male

DRUGS (3)
  1. NOVANTRONE [Concomitant]
     Dates: start: 20120202
  2. TYSABRI [Suspect]
     Indication: MULTIPLE SCLEROSIS
     Route: 042
     Dates: start: 20061016
  3. SOLU-MEDROL [Concomitant]
     Dates: start: 20120202

REACTIONS (3)
  - COGNITIVE DISORDER [None]
  - DRUG INEFFECTIVE [None]
  - FATIGUE [None]
